FAERS Safety Report 14659001 (Version 2)
Quarter: 2018Q2

REPORT INFORMATION
  Report Type: Spontaneous
  Country: US (occurrence: US)
  Receive Date: 20180320
  Receipt Date: 20180406
  Transmission Date: 20180711
  Serious: Yes (Life-Threatening, Hospitalization, Other)
  Sender: FDA-Public Use
  Company Number: US-009507513-1803USA005865

PATIENT
  Age: 63 Year
  Sex: Male

DRUGS (2)
  1. BUPIVACAINE. [Suspect]
     Active Substance: BUPIVACAINE
     Dosage: UNK
     Dates: start: 20171204, end: 20171204
  2. BRIDION [Suspect]
     Active Substance: SUGAMMADEX
     Indication: NERVE BLOCK
     Dosage: CONCENTRATION: 500/5 MG/ML; ROUTE OF ADMINISTRATION: ^TAP BLOCK^
     Dates: start: 20171204, end: 20171204

REACTIONS (2)
  - Cardiac arrest [Recovered/Resolved]
  - Hypotension [Recovered/Resolved]

NARRATIVE: CASE EVENT DATE: 20171204
